FAERS Safety Report 5368677-4 (Version None)
Quarter: 2007Q2

REPORT INFORMATION
  Report Type: 
  Country: None (occurrence: None)
  Receive Date: 20070620
  Receipt Date: 20060724
  Transmission Date: 20071010
  Serious: No
  Sender: FDA-Public Use
  Company Number: 002#1#2006-00224

PATIENT
  Age: 59 Year
  Sex: Female
  Weight: 77.1115 kg

DRUGS (3)
  1. UNIVASC [Suspect]
     Indication: HYPERTENSION
     Dosage: 7.5 MG, 1ONCE, ORAL
     Route: 048
     Dates: start: 20060705, end: 20060705
  2. ATORVASTATIN CALCIUM [Concomitant]
  3. ESTRADIOL [Concomitant]

REACTIONS (2)
  - PRURITUS [None]
  - RASH [None]
